FAERS Safety Report 11072137 (Version 2)
Quarter: 2015Q2

REPORT INFORMATION
  Report Type: Spontaneous
  Country: FR (occurrence: FR)
  Receive Date: 20150428
  Receipt Date: 20150428
  Transmission Date: 20150821
  Serious: Yes (Hospitalization)
  Sender: FDA-Public Use
  Company Number: PHHY2015FR046836

PATIENT
  Age: 25 Year
  Sex: Male

DRUGS (4)
  1. ZOPICLONE [Concomitant]
     Active Substance: ZOPICLONE
     Indication: SCHIZOPHRENIA
     Dosage: 7.5 MG, QD
     Route: 065
     Dates: start: 2011
  2. BIPERIDEN [Concomitant]
     Active Substance: BIPERIDEN
     Indication: SCHIZOPHRENIA
     Dosage: 4 MG, QD
     Route: 065
     Dates: start: 2011
  3. CLOZAPINE. [Suspect]
     Active Substance: CLOZAPINE
     Indication: SCHIZOPHRENIA
     Dosage: 400 MG, QD
     Route: 065
     Dates: start: 2011
  4. CLOZAPINE. [Suspect]
     Active Substance: CLOZAPINE
     Dosage: 5 G, UNK
     Route: 065

REACTIONS (5)
  - Intentional overdose [Unknown]
  - Supraventricular tachycardia [Recovered/Resolved]
  - Toxicity to various agents [Unknown]
  - Hypotension [Unknown]
  - Antipsychotic drug level above therapeutic [Unknown]
